FAERS Safety Report 9738791 (Version 1)
Quarter: 2013Q4

REPORT INFORMATION
  Report Type: Spontaneous
  Country: GB (occurrence: GB)
  Receive Date: 20131209
  Receipt Date: 20131209
  Transmission Date: 20140711
  Serious: Yes (Disabling)
  Sender: FDA-Public Use
  Company Number: GB-JNJFOC-20131118478

PATIENT
  Age: 74 Year
  Sex: Female
  Weight: 78 kg

DRUGS (9)
  1. XARELTO [Suspect]
     Indication: PRODUCT USED FOR UNKNOWN INDICATION
     Route: 048
  2. IBUPROFEN [Concomitant]
     Route: 065
     Dates: start: 20130820, end: 20130917
  3. PARACETAMOL [Concomitant]
     Route: 065
     Dates: start: 20130729, end: 20130930
  4. LOSEC [Concomitant]
     Route: 065
     Dates: start: 20130927, end: 20131025
  5. MOMETASONE [Concomitant]
     Route: 065
     Dates: start: 20130902, end: 20130930
  6. SOLARAZE [Concomitant]
     Route: 065
     Dates: start: 20130820, end: 20130821
  7. COLOFAC [Concomitant]
     Route: 065
     Dates: start: 20130729, end: 20130826
  8. CETIRIZINE [Concomitant]
     Route: 065
     Dates: start: 20130729, end: 20130929
  9. LEVOTHYROXINE [Concomitant]
     Route: 065
     Dates: start: 20130729

REACTIONS (4)
  - Abdominal pain [Unknown]
  - Dyspepsia [Recovered/Resolved]
  - Malaise [Recovered/Resolved]
  - Nausea [Recovered/Resolved]
